FAERS Safety Report 14995876 (Version 2)
Quarter: 2018Q3

REPORT INFORMATION
  Report Type: Spontaneous
  Country: US (occurrence: US)
  Receive Date: 20180611
  Receipt Date: 20180717
  Transmission Date: 20181010
  Serious: Yes (Other)
  Sender: FDA-Public Use
  Company Number: US-VIVIMED-2018SP004373

PATIENT

DRUGS (16)
  1. METRONIDAZOLE. [Suspect]
     Active Substance: METRONIDAZOLE
     Indication: VULVOVAGINITIS TRICHOMONAL
     Dosage: 2 G, SINGLE DOSE
     Route: 048
  2. METRONIDAZOLE. [Suspect]
     Active Substance: METRONIDAZOLE
     Dosage: 2 G, DAILY
     Route: 048
  3. METRONIDAZOLE. [Suspect]
     Active Substance: METRONIDAZOLE
     Dosage: 0.75 %, QD
     Route: 067
  4. TINIDAZOLE. [Suspect]
     Active Substance: TINIDAZOLE
     Dosage: 2 G, DAILY
     Route: 048
  5. TINIDAZOLE. [Suspect]
     Active Substance: TINIDAZOLE
     Indication: VULVOVAGINITIS TRICHOMONAL
     Dosage: 2 G, DAILY
     Route: 048
  6. TINIDAZOLE. [Suspect]
     Active Substance: TINIDAZOLE
     Dosage: UNK (VAGINAL PASTE)
     Route: 061
  7. METRONIDAZOLE. [Suspect]
     Active Substance: METRONIDAZOLE
     Dosage: 500 MG, EVERY 8 HOURS
     Route: 042
  8. TINIDAZOLE. [Suspect]
     Active Substance: TINIDAZOLE
     Dosage: 2 G, LIQUID, DAILY
     Route: 048
  9. BORIC ACID [Suspect]
     Active Substance: BORIC ACID
     Indication: VULVOVAGINITIS TRICHOMONAL
     Dosage: 600 MG, UNK
     Route: 067
  10. ZINC SULFATE [Suspect]
     Active Substance: ZINC SULFATE\ZINC SULFATE ANHYDROUS
     Indication: VULVOVAGINITIS TRICHOMONAL
     Dosage: UNK
     Route: 067
  11. BORIC ACID [Suspect]
     Active Substance: BORIC ACID
     Dosage: 600 MG, DAILY
     Route: 067
  12. METRONIDAZOLE. [Suspect]
     Active Substance: METRONIDAZOLE
     Dosage: 500 MG, EVERY 8 HOURS
  13. PROMETHAZINE [Concomitant]
     Active Substance: PROMETHAZINE\PROMETHAZINE HYDROCHLORIDE
     Indication: NAUSEA
     Dosage: UNK, PRN
     Route: 065
  14. TINIDAZOLE. [Suspect]
     Active Substance: TINIDAZOLE
     Dosage: 2 G, DAILY
     Route: 048
  15. PAROMOMYCIN [Concomitant]
     Active Substance: PAROMOMYCIN
     Indication: VULVOVAGINITIS TRICHOMONAL
     Dosage: UNK
     Route: 067
  16. BORIC ACID [Suspect]
     Active Substance: BORIC ACID
     Dosage: 600 MG, DAILY
     Route: 067

REACTIONS (1)
  - Drug ineffective [Unknown]
